FAERS Safety Report 15027451 (Version 1)
Quarter: 2018Q2

REPORT INFORMATION
  Report Type: Spontaneous
  Country: US (occurrence: US)
  Receive Date: 20180619
  Receipt Date: 20180619
  Transmission Date: 20180711
  Serious: Yes (Hospitalization, Other)
  Sender: FDA-Public Use
  Company Number: US-AXELLIA-001745

PATIENT
  Age: 6 Year
  Sex: Male

DRUGS (9)
  1. CICLOSPORIN [Suspect]
     Active Substance: CYCLOSPORINE
     Indication: IMMUNOSUPPRESSION
  2. RANITIDINE. [Concomitant]
     Active Substance: RANITIDINE
  3. SULFAMETHOXAZOLE/TRIMETHOPRIM [Concomitant]
  4. CALCIUM CARBONATE. [Concomitant]
     Active Substance: CALCIUM CARBONATE
  5. COLECALCIFEROL [Concomitant]
     Active Substance: CHOLECALCIFEROL
  6. PHENOBARBITAL. [Concomitant]
     Active Substance: PHENOBARBITAL
  7. BUDESONIDE. [Concomitant]
     Active Substance: BUDESONIDE
  8. CEFALEXIN [Concomitant]
     Active Substance: CEPHALEXIN
     Indication: PROPHYLAXIS
  9. VORICONAZOLE. [Suspect]
     Active Substance: VORICONAZOLE
     Indication: PROPHYLAXIS

REACTIONS (2)
  - Squamous cell carcinoma [Recovered/Resolved]
  - Actinic keratosis [Recovering/Resolving]
